FAERS Safety Report 5052813-3 (Version None)
Quarter: 2006Q3

REPORT INFORMATION
  Report Type: 
  Country: None (occurrence: None)
  Receive Date: 20060717
  Receipt Date: 20060706
  Transmission Date: 20061208
  Serious: Yes (Other)
  Sender: FDA-Public Use
  Company Number: 2006AP03124

PATIENT
  Age: 60 Year
  Sex: Male

DRUGS (6)
  1. BUPIVACAINE HYDROCHLORIDE [Suspect]
     Route: 065
  2. ROPIVACAINE HYDROCHLORIDE [Suspect]
     Route: 065
  3. LIGNOCAINE [Suspect]
     Route: 065
  4. FENTANYL TRANSDERMAL SYSTEM [Suspect]
  5. HEPARIN SODIUM [Suspect]
  6. PETHIDINE HYDROCHLORIDE [Suspect]

REACTIONS (3)
  - ANAESTHETIC COMPLICATION [None]
  - PROCEDURAL COMPLICATION [None]
  - SPINAL HAEMATOMA [None]
